FAERS Safety Report 9855336 (Version 2)
Quarter: 2014Q2

REPORT INFORMATION
  Report Type: Report from Study
  Country: CA (occurrence: CA)
  Receive Date: 20140130
  Receipt Date: 20140527
  Transmission Date: 20141212
  Serious: Yes (Other)
  Sender: FDA-Public Use
  Company Number: CA-JNJFOC-20140115089

PATIENT
  Age: 41 Year
  Sex: Female
  Weight: 84.5 kg

DRUGS (6)
  1. REMICADE [Suspect]
     Indication: CROHN^S DISEASE
     Route: 042
     Dates: start: 20110729
  2. MULTIVITAMINS [Concomitant]
     Route: 065
  3. NOVO-RAPID [Concomitant]
     Indication: DIABETES MELLITUS
     Route: 065
  4. FOLIC ACID [Concomitant]
     Route: 065
  5. VITAMIN B 12 [Concomitant]
     Route: 065
  6. IRON INFUSIONS [Concomitant]
     Route: 065

REACTIONS (5)
  - Blood iron decreased [Unknown]
  - Gastroenteritis viral [Not Recovered/Not Resolved]
  - Pharyngitis streptococcal [Not Recovered/Not Resolved]
  - Fatigue [Not Recovered/Not Resolved]
  - Pallor [Not Recovered/Not Resolved]
